FAERS Safety Report 6621519-9 (Version None)
Quarter: 2010Q1

REPORT INFORMATION
  Report Type: 
  Country: None (occurrence: None)
  Receive Date: 20100309
  Receipt Date: 20100201
  Transmission Date: 20100710
  Serious: Yes (Other)
  Sender: FDA-Public Use
  Company Number: JP-BAYER-1198710386

PATIENT
  Age: 26 Year
  Sex: Female
  Weight: 50 kg

DRUGS (9)
  1. NIFEDIPINE [Suspect]
     Indication: HYPERTENSION
     Route: 054
  2. PHENOBARBITAL [Concomitant]
     Indication: CONVULSION
  3. DIAZEPAM [Concomitant]
     Indication: AGITATION
  4. CHLORPROMAZINE [Concomitant]
     Indication: AGITATION
     Route: 042
  5. MANNITOL [Concomitant]
     Indication: URINE OUTPUT DECREASED
  6. FRUSEMIDE [Concomitant]
     Indication: URINE OUTPUT DECREASED
     Dosage: TWO DOSES
  7. PLASMANATE CUTTER [Concomitant]
     Indication: CAESAREAN SECTION
  8. FROZEN HUMAN PLASMA [Concomitant]
     Indication: CAESAREAN SECTION
  9. RINGER'S [Concomitant]
     Indication: CAESAREAN SECTION

REACTIONS (3)
  - HYPOTENSION [None]
  - INTRA-UTERINE DEATH [None]
  - TACHYCARDIA [None]
